FAERS Safety Report 6395021-6 (Version None)
Quarter: 2009Q4

REPORT INFORMATION
  Report Type: 
  Country: None (occurrence: None)
  Receive Date: 20091009
  Receipt Date: 20091002
  Transmission Date: 20100525
  Serious: Yes (Life-Threatening, Other)
  Sender: FDA-Public Use
  Company Number: US-WYE-H11408109

PATIENT
  Sex: Female
  Weight: 81.72 kg

DRUGS (2)
  1. PRISTIQ [Suspect]
     Indication: DEPRESSED MOOD
     Route: 048
     Dates: start: 20090813, end: 20090922
  2. ORTHO TRI-CYCLEN [Concomitant]
     Indication: CONTRACEPTION
     Dosage: UNKNOWN
     Route: 048
     Dates: start: 20070101

REACTIONS (7)
  - AGGRESSION [None]
  - ANGER [None]
  - ANXIETY [None]
  - CONTUSION [None]
  - INTENTIONAL SELF-INJURY [None]
  - PREMENSTRUAL SYNDROME [None]
  - SKIN LACERATION [None]
